FAERS Safety Report 6903950-7 (Version None)
Quarter: 2010Q3

REPORT INFORMATION
  Report Type: 
  Country: None (occurrence: None)
  Receive Date: 20100804
  Receipt Date: 20090210
  Transmission Date: 20110219
  Serious: Yes (Other)
  Sender: FDA-Public Use
  Company Number: US-PFIZER INC-2008085689

PATIENT
  Sex: Female
  Weight: 90.7 kg

DRUGS (6)
  1. LYRICA [Suspect]
     Indication: INTERVERTEBRAL DISC PROTRUSION
     Route: 048
     Dates: start: 20080709, end: 20081010
  2. LYRICA [Suspect]
     Indication: NEURALGIA
  3. LYRICA [Suspect]
     Indication: FIBROMYALGIA
  4. CYMBALTA [Concomitant]
  5. ANTIINFLAMMATORY/ANTIRHEUMATIC PRODUCTS [Concomitant]
     Route: 048
  6. CARDIAC THERAPY [Concomitant]
     Indication: CARDIAC DISORDER
     Route: 048

REACTIONS (10)
  - DIZZINESS [None]
  - DRUG INEFFECTIVE [None]
  - HEADACHE [None]
  - HOT FLUSH [None]
  - HYPOTONIA [None]
  - SEDATION [None]
  - UNEVALUABLE EVENT [None]
  - VERTIGO [None]
  - VISION BLURRED [None]
  - WEIGHT INCREASED [None]
